FAERS Safety Report 17725083 (Version 1)
Quarter: 2020Q2

REPORT INFORMATION
  Report Type: Spontaneous
  Country: FR (occurrence: FR)
  Receive Date: 20200429
  Receipt Date: 20200429
  Transmission Date: 20200714
  Serious: Yes (Life-Threatening, Hospitalization)
  Sender: FDA-Public Use
  Company Number: FR-ANIPHARMA-2020-FR-000125

PATIENT
  Age: 72 Year
  Sex: Male
  Weight: 73 kg

DRUGS (9)
  1. CANDESARTAN. [Suspect]
     Active Substance: CANDESARTAN
     Indication: HYPERTENSION
     Dosage: 16 MG QD
     Route: 048
     Dates: end: 20200316
  2. ATORVASTATIN [Suspect]
     Active Substance: ATORVASTATIN
     Dosage: 20 MG QD
     Route: 048
     Dates: end: 20200316
  3. GLICLAZIDE [Suspect]
     Active Substance: GLICLAZIDE
     Dosage: 120 MCURIES DAILY
     Route: 048
     Dates: end: 20200316
  4. JANUMET [Suspect]
     Active Substance: METFORMIN HYDROCHLORIDE\SITAGLIPTIN PHOSPHATE
     Dosage: 100/2000 MILLIGRAM, 2 DOSAGE FORM, ONCE DAILY
     Route: 048
     Dates: end: 20200316
  5. KARDEGIC [Suspect]
     Active Substance: ASPIRIN DL-LYSINE
     Dosage: 160 MG QD
     Route: 048
     Dates: end: 20200316
  6. HYDROCHLOROTHIAZIDE. [Suspect]
     Active Substance: HYDROCHLOROTHIAZIDE
     Dosage: 12.5 MG QD
     Route: 048
     Dates: end: 20200316
  7. BRAFTOVI [Suspect]
     Active Substance: ENCORAFENIB
     Dosage: 450 MG QD
     Route: 048
     Dates: start: 20200311, end: 20200316
  8. MEKTOVI [Suspect]
     Active Substance: BINIMETINIB
     Dosage: 90 MG QD
     Route: 048
     Dates: start: 20200311, end: 20200316
  9. PERINDOPRIL [Suspect]
     Active Substance: PERINDOPRIL
     Dosage: 4 MG QD
     Route: 048
     Dates: end: 20200316

REACTIONS (2)
  - Acute kidney injury [Recovering/Resolving]
  - Vomiting [Recovered/Resolved]

NARRATIVE: CASE EVENT DATE: 20200313
